FAERS Safety Report 21508899 (Version 1)
Quarter: 2022Q4

REPORT INFORMATION
  Report Type: Spontaneous
  Country: MX (occurrence: None)
  Receive Date: 20221026
  Receipt Date: 20221026
  Transmission Date: 20230113
  Serious: Yes (Other)
  Sender: FDA-Public Use
  Company Number: MX-ROCHE-3206110

PATIENT
  Sex: Female

DRUGS (1)
  1. KADCYLA [Suspect]
     Active Substance: ADO-TRASTUZUMAB EMTANSINE
     Indication: Product used for unknown indication
     Dosage: DOSE AND FREQUENCY WERE NOT INFORMED
     Route: 065

REACTIONS (4)
  - Dyspnoea [Unknown]
  - Hypoxia [Unknown]
  - Fatigue [Unknown]
  - General physical health deterioration [Unknown]
